FAERS Safety Report 21773225 (Version 1)
Quarter: 2022Q4

REPORT INFORMATION
  Report Type: Spontaneous
  Country: US (occurrence: None)
  Receive Date: 20221221
  Receipt Date: 20221221
  Transmission Date: 20230113
  Serious: Yes (Disabling)
  Sender: FDA-Public Use
  Company Number: None

PATIENT
  Age: 34 Year
  Sex: Female
  Weight: 85.5 kg

DRUGS (1)
  1. GONADOTROPHIN, CHORIONIC [Suspect]
     Active Substance: GONADOTROPHIN, CHORIONIC
     Indication: Weight decreased
     Dates: start: 20201125, end: 20210715

REACTIONS (17)
  - Inability to afford medication [None]
  - Binge eating [None]
  - Drug ineffective [None]
  - Bulimia nervosa [None]
  - General physical health deterioration [None]
  - Obsessive thoughts [None]
  - Malaise [None]
  - Menstruation irregular [None]
  - Dysmenorrhoea [None]
  - Heavy menstrual bleeding [None]
  - Mental disorder [None]
  - Hypertrichosis [None]
  - Product communication issue [None]
  - Weight increased [None]
  - Nightmare [None]
  - Wrong patient [None]
  - Victim of crime [None]

NARRATIVE: CASE EVENT DATE: 20201123
